FAERS Safety Report 4801176-4 (Version None)
Quarter: 2005Q4

REPORT INFORMATION
  Report Type: 
  Country: None (occurrence: None)
  Receive Date: 20051011
  Receipt Date: 20051005
  Transmission Date: 20060501
  Serious: Yes (Hospitalization, Other)
  Sender: FDA-Public Use
  Company Number: 200510627BNE

PATIENT
  Age: 23 Year
  Sex: Female
  Weight: 57 kg

DRUGS (4)
  1. CIPROFLOXACIN [Suspect]
     Indication: GENITAL INFECTION FEMALE
     Dosage: 500 MG, TOTAL DAILY, ORAL
     Route: 048
     Dates: start: 20050918, end: 20050919
  2. METRONIDAZOLE [Concomitant]
  3. CEPHALEXIN [Concomitant]
  4. DOXYCYCLINE [Concomitant]

REACTIONS (2)
  - DYSKINESIA [None]
  - DYSTONIA [None]
